FAERS Safety Report 9792486 (Version 4)
Quarter: 2014Q1

REPORT INFORMATION
  Report Type: Report from Study
  Country: US (occurrence: US)
  Receive Date: 20140102
  Receipt Date: 20140313
  Transmission Date: 20141002
  Serious: Yes (Hospitalization)
  Sender: FDA-Public Use
  Company Number: US-US-EMD SERONO, INC.-7225754

PATIENT
  Age: 50 Year
  Sex: Female

DRUGS (2)
  1. REBIF [Suspect]
     Indication: RELAPSING-REMITTING MULTIPLE SCLEROSIS
     Route: 058
     Dates: start: 20130311
  2. REBIF [Suspect]
     Route: 058
     Dates: start: 20131103

REACTIONS (5)
  - Nasopharyngitis [Unknown]
  - Multiple sclerosis relapse [Recovered/Resolved]
  - Pyrexia [Unknown]
  - Fall [Recovered/Resolved]
  - Ligament sprain [Recovering/Resolving]
